FAERS Safety Report 8960312 (Version 1)
Quarter: 2012Q4

REPORT INFORMATION
  Report Type: 
  Country: US (occurrence: US)
  Receive Date: 20121212
  Receipt Date: 20121212
  Transmission Date: 20130627
  Serious: Yes (Hospitalization)
  Sender: FDA-Public Use
  Company Number: US-ELI_LILLY_AND_COMPANY-US201211009574

PATIENT
  Sex: Male

DRUGS (3)
  1. HUMALOG 25% LISPRO, 75% NPL [Suspect]
     Indication: DIABETES MELLITUS
     Dosage: 33 u, qd
     Dates: start: 201111
  2. HUMALOG 25% LISPRO, 75% NPL [Suspect]
     Dosage: 33 u, qd
  3. HUMALOG 25% LISPRO, 75% NPL [Suspect]
     Dosage: 33 u, qd

REACTIONS (3)
  - Hospitalisation [Unknown]
  - Blood glucose increased [Unknown]
  - Blood glucose decreased [Unknown]
